FAERS Safety Report 23402271 (Version 1)
Quarter: 2024Q1

REPORT INFORMATION
  Report Type: Report from Study
  Country: GB (occurrence: GB)
  Receive Date: 20240115
  Receipt Date: 20240115
  Transmission Date: 20240409
  Serious: Yes (Other)
  Sender: FDA-Public Use
  Company Number: GB-SANDOZ-SDZ2023GB046431

PATIENT
  Sex: Female

DRUGS (1)
  1. HYRIMOZ [Suspect]
     Active Substance: ADALIMUMAB-ADAZ
     Indication: Psoriatic arthropathy
     Dosage: 40 MG, EOW
     Route: 058
     Dates: start: 20230808

REACTIONS (4)
  - Lower respiratory tract infection [Recovering/Resolving]
  - Cough [Unknown]
  - Influenza [Unknown]
  - Pain [Unknown]
